FAERS Safety Report 18973047 (Version 1)
Quarter: 2021Q1

REPORT INFORMATION
  Report Type: Spontaneous
  Country: US (occurrence: US)
  Receive Date: 20210305
  Receipt Date: 20210305
  Transmission Date: 20210420
  Serious: No
  Sender: FDA-Public Use
  Company Number: None

PATIENT
  Age: 41 Year
  Sex: Female
  Weight: 74.25 kg

DRUGS (8)
  1. METHYLPREDISONE [Concomitant]
     Active Substance: METHYLPREDNISOLONE
  2. CETIRIZINE [Concomitant]
     Active Substance: CETIRIZINE HYDROCHLORIDE
  3. ELURYNG [Concomitant]
     Active Substance: ETHINYL ESTRADIOL\ETONOGESTREL
  4. NEO?SYNEPHRINE EXTRA STRENGTH [Suspect]
     Active Substance: PHENYLEPHRINE HYDROCHLORIDE
     Indication: NASAL SEPTUM DEVIATION
     Dosage: ?          OTHER STRENGTH:1/2 FL OZ;QUANTITY:3 SPRAY(S);?
     Route: 055
  5. VITAMIN D [Concomitant]
     Active Substance: VITAMIN D NOS
  6. BUSPIRONE [Concomitant]
     Active Substance: BUSPIRONE HYDROCHLORIDE
  7. LEVOTHYROXINE. [Concomitant]
     Active Substance: LEVOTHYROXINE
  8. CYCLOBENZAPRINE. [Concomitant]
     Active Substance: CYCLOBENZAPRINE

REACTIONS (8)
  - Nasopharyngitis [None]
  - Discomfort [None]
  - Abdominal discomfort [None]
  - Impaired work ability [None]
  - Sinusitis [None]
  - Product odour abnormal [None]
  - Product taste abnormal [None]
  - Pulmonary congestion [None]

NARRATIVE: CASE EVENT DATE: 20210302
